FAERS Safety Report 8772190 (Version 1)
Quarter: 2012Q4

REPORT INFORMATION
  Report Type: 
  Country: NL (occurrence: NL)
  Receive Date: 20120905
  Receipt Date: 20120905
  Transmission Date: 20130627
  Serious: Yes (Other)
  Sender: FDA-Public Use
  Company Number: NL-PFIZER INC-2012213648

PATIENT
  Age: 62 Year
  Sex: Male

DRUGS (1)
  1. LIPITOR [Suspect]
     Dosage: UNK

REACTIONS (3)
  - Neoplasm [Unknown]
  - Mood swings [Unknown]
  - Fatigue [Unknown]
